FAERS Safety Report 25317292 (Version 3)
Quarter: 2025Q3

REPORT INFORMATION
  Report Type: Report from Study
  Country: US (occurrence: US)
  Receive Date: 20250515
  Receipt Date: 20250809
  Transmission Date: 20251020
  Serious: Yes (Other)
  Sender: ALEXION PHARMACEUTICALS
  Company Number: US-AstraZeneca-CH-00861241A

PATIENT
  Sex: Female

DRUGS (1)
  1. STRENSIQ [Suspect]
     Active Substance: ASFOTASE ALFA
     Dosage: UNK, SIX TIMES/WEEK
     Route: 065

REACTIONS (6)
  - Renal disorder [Unknown]
  - Incorrect dose administered [Unknown]
  - Fatigue [Unknown]
  - Insomnia [Recovering/Resolving]
  - Expired product administered [Unknown]
  - Blood alkaline phosphatase decreased [Unknown]
